FAERS Safety Report 18249639 (Version 1)
Quarter: 2020Q3

REPORT INFORMATION
  Report Type: Spontaneous
  Country: DE (occurrence: DE)
  Receive Date: 20200909
  Receipt Date: 20200909
  Transmission Date: 20201103
  Serious: Yes (Other)
  Sender: FDA-Public Use
  Company Number: DE-BAYER-2019-215575

PATIENT
  Age: 30 Year
  Sex: Female

DRUGS (1)
  1. JAYDESS [Suspect]
     Active Substance: LEVONORGESTREL
     Dosage: 14 MCG/24HR, CONT
     Route: 015
     Dates: start: 2018, end: 20200325

REACTIONS (5)
  - Pregnancy with contraceptive device [None]
  - Preterm premature rupture of membranes [None]
  - Premature delivery [None]
  - Retroplacental haematoma [None]
  - Drug ineffective [None]

NARRATIVE: CASE EVENT DATE: 20191017
